FAERS Safety Report 7255683-8 (Version None)
Quarter: 2011Q1

REPORT INFORMATION
  Report Type: 
  Country: None (occurrence: None)
  Receive Date: 20110129
  Receipt Date: 20100823
  Transmission Date: 20110831
  Serious: No
  Sender: FDA-Public Use
  Company Number: US-ABBOTT-10P-163-0666925-00

PATIENT
  Sex: Male
  Weight: 74.91 kg

DRUGS (3)
  1. OMEPRAZOLE [Concomitant]
     Indication: GASTROOESOPHAGEAL REFLUX DISEASE
  2. HUMIRA [Suspect]
     Indication: PSORIASIS
     Dosage: ONCE
     Dates: start: 20100815, end: 20100815
  3. COBETAZOLE [Concomitant]
     Indication: PSORIASIS
     Route: 061

REACTIONS (4)
  - DISCOMFORT [None]
  - FEELING JITTERY [None]
  - ANXIETY [None]
  - DRUG HYPERSENSITIVITY [None]
